FAERS Safety Report 4308758-7 (Version None)
Quarter: 2004Q1

REPORT INFORMATION
  Report Type: 
  Country: None (occurrence: None)
  Receive Date: 20040227
  Receipt Date: 20040217
  Transmission Date: 20041129
  Serious: Yes (Hospitalization)
  Sender: FDA-Public Use
  Company Number: US-JNJFOC-20040203952

PATIENT

DRUGS (1)
  1. RISPERDAL CONSTA [Suspect]
     Dosage: INTRA-MUSCULAR
     Route: 030

REACTIONS (1)
  - MEDICATION ERROR [None]
